FAERS Safety Report 25138129 (Version 1)
Quarter: 2025Q1

REPORT INFORMATION
  Report Type: Spontaneous
  Country: BE (occurrence: BE)
  Receive Date: 20250330
  Receipt Date: 20250330
  Transmission Date: 20250408
  Serious: Yes (Death, Other)
  Sender: BOEHRINGER INGELHEIM
  Company Number: BE-BoehringerIngelheim-2025-BI-018167

PATIENT
  Age: 84 Year
  Sex: Male

DRUGS (14)
  1. JARDIANCE [Suspect]
     Active Substance: EMPAGLIFLOZIN
     Indication: Cardiac failure
     Dosage: AT BREAKFAST
     Dates: start: 20241124, end: 20241210
  2. VENTOLIN [Concomitant]
     Active Substance: ALBUTEROL SULFATE
     Dosage: BREAKFAST-DINNER-SUPPER
     Dates: start: 20241112
  3. Paracetamol EG Forte [Concomitant]
     Dosage: DINNER-SUPPER
     Dates: start: 20241002
  4. ASPIRIN [Concomitant]
     Active Substance: ASPIRIN
     Dosage: DINNER
     Dates: start: 20241002
  5. BISOPROLOL FUMARATE [Concomitant]
     Active Substance: BISOPROLOL FUMARATE
     Dosage: DINNER
     Dates: start: 20241002
  6. DORMONOCT [Concomitant]
     Active Substance: LOPRAZOLAM
     Dosage: SUPPER
     Dates: start: 20241025
  7. LIPITOR [Concomitant]
     Active Substance: ATORVASTATIN CALCIUM
     Dosage: DINNER
     Dates: start: 20241002
  8. TAMSULOSIN HYDROCHLORIDE [Concomitant]
     Active Substance: TAMSULOSIN HYDROCHLORIDE
     Dosage: DINNER
     Dates: start: 20241002
  9. Pantoprazole Viatris [Concomitant]
     Dosage: DINNER
     Dates: start: 20241002
  10. Calcium-D Forte EG [Concomitant]
     Dosage: 1000MG/800IU AT SUPPER
     Dates: start: 20241002
  11. BUMETANIDE [Concomitant]
     Active Substance: BUMETANIDE
     Dosage: BREAKFAST
     Dates: start: 20241127
  12. BUDESONIDE\FORMOTEROL\GLYCOPYRRONIUM [Concomitant]
     Active Substance: BUDESONIDE\FORMOTEROL\GLYCOPYRRONIUM
     Dosage: 2 AT BREAKFAST AND 2 AT SUPPER
     Dates: start: 20241127
  13. FENTANYL [Concomitant]
     Active Substance: FENTANYL
     Dosage: 4,2 MG/10,5 CM?
     Dates: start: 20241210
  14. RISPERDAL [Concomitant]
     Active Substance: RISPERIDONE
     Dosage: 1/2 AT BREAKFAST
     Dates: start: 20241218

REACTIONS (6)
  - General physical health deterioration [Fatal]
  - Gastric cancer [Unknown]
  - Rash pruritic [Unknown]
  - Blister [Unknown]
  - Skin wound [Unknown]
  - C-reactive protein increased [Unknown]

NARRATIVE: CASE EVENT DATE: 20241210
